FAERS Safety Report 4913843-2 (Version None)
Quarter: 2006Q1

REPORT INFORMATION
  Report Type: 
  Country: None (occurrence: None)
  Receive Date: 20060210
  Receipt Date: 20060126
  Transmission Date: 20060701
  Serious: Yes (Hospitalization)
  Sender: FDA-Public Use
  Company Number: DSA_27709_2006

PATIENT
  Age: 16 Year
  Sex: Female

DRUGS (15)
  1. LORAZEPAM [Suspect]
     Indication: CATATONIA
     Dosage: 1 MG PO
     Route: 048
  2. LORAZEPAM [Suspect]
     Indication: MANIA
     Dosage: 1 MG PO
     Route: 048
  3. LORAZEPAM [Suspect]
     Indication: CATATONIA
     Dosage: 0.5 MG BID PO
     Route: 048
  4. LORAZEPAM [Suspect]
     Indication: MANIA
     Dosage: 0.5 MG BID PO
     Route: 048
  5. HALOPERIDOL [Concomitant]
  6. ZIPRASIDONE HCL [Concomitant]
  7. LORAZEPAM [Suspect]
     Indication: CATATONIA
     Dosage: 0.5 MG TID PO
     Route: 048
  8. LORAZEPAM [Suspect]
     Indication: MANIA
     Dosage: 0.5 MG TID PO
     Route: 048
  9. LORAZEPAM [Suspect]
     Indication: CATATONIA
     Dosage: 1 MG TID PO
     Route: 048
  10. LORAZEPAM [Suspect]
     Indication: MANIA
     Dosage: 1 MG TID PO
     Route: 048
  11. ZIPRASIDONE HCL [Concomitant]
  12. TRAZODONE [Concomitant]
  13. DEPAKOTE [Concomitant]
  14. ARIPIPRAZOLE [Concomitant]
  15. BENZTROPINE MESYLATE [Concomitant]

REACTIONS (2)
  - CATATONIA [None]
  - DRUG TOLERANCE [None]
